FAERS Safety Report 5689369-8 (Version None)
Quarter: 2008Q1

REPORT INFORMATION
  Report Type: 
  Country: None (occurrence: None)
  Receive Date: 20080331
  Receipt Date: 20080319
  Transmission Date: 20080703
  Serious: Yes (Hospitalization)
  Sender: FDA-Public Use
  Company Number: DE-AMGEN-UK271094

PATIENT
  Sex: Male

DRUGS (4)
  1. PANITUMUMAB [Suspect]
     Indication: COLORECTAL CANCER
     Dates: start: 20080115
  2. LEUCOVORIN CALCIUM [Suspect]
  3. FLUOROURACIL [Suspect]
  4. IRINOTECAN HCL [Suspect]

REACTIONS (3)
  - ANAEMIA [None]
  - DIARRHOEA [None]
  - LEUKOPENIA [None]
